FAERS Safety Report 4780311-0 (Version None)
Quarter: 2005Q3

REPORT INFORMATION
  Report Type: 
  Country: None (occurrence: None)
  Receive Date: 20050926
  Receipt Date: 20050926
  Transmission Date: 20060218
  Serious: Yes (Disabling, Other)
  Sender: FDA-Public Use
  Company Number: None

PATIENT
  Age: 46 Year
  Sex: Female
  Weight: 56.6996 kg

DRUGS (2)
  1. ZITHROMAX [Suspect]
     Indication: PNEUMONIA
     Dosage: 500 MG DAILY PO
     Route: 048
     Dates: start: 20050829, end: 20050903
  2. SUDAFED 12 HOUR [Concomitant]

REACTIONS (1)
  - DEAFNESS NEUROSENSORY [None]
